FAERS Safety Report 7054574-5 (Version None)
Quarter: 2010Q4

REPORT INFORMATION
  Report Type: 
  Country: None (occurrence: None)
  Receive Date: 20101015
  Receipt Date: 20101004
  Transmission Date: 20110411
  Serious: Yes (Death)
  Sender: FDA-Public Use
  Company Number: DKLU1065426

PATIENT
  Age: 21 Month
  Sex: Female

DRUGS (1)
  1. SABRIL [Suspect]
     Indication: GRAND MAL CONVULSION
     Dosage: 1000 MG MILLIGRAM(S), 2 IN 1 D

REACTIONS (1)
  - DEATH [None]
